FAERS Safety Report 17387748 (Version 1)
Quarter: 2020Q1

REPORT INFORMATION
  Report Type: Spontaneous
  Country: JP (occurrence: JP)
  Receive Date: 20200206
  Receipt Date: 20200206
  Transmission Date: 20200409
  Serious: Yes (Other)
  Sender: FDA-Public Use
  Company Number: JP-PFIZER INC-2020050907

PATIENT
  Age: 3 Decade
  Sex: Male

DRUGS (1)
  1. MEROPENEM. [Suspect]
     Active Substance: MEROPENEM
     Dosage: UNK
     Route: 041

REACTIONS (5)
  - Mucormycosis [Unknown]
  - Neutropenia [Unknown]
  - Pupillary reflex impaired [Unknown]
  - Pyrexia [Unknown]
  - Visual acuity reduced [Unknown]
